FAERS Safety Report 4503467-3 (Version None)
Quarter: 2004Q4

REPORT INFORMATION
  Report Type: 
  Country: None (occurrence: None)
  Receive Date: 20041112
  Receipt Date: 20041029
  Transmission Date: 20050328
  Serious: Yes (Hospitalization, Other)
  Sender: FDA-Public Use
  Company Number: USA-2002-0001016

PATIENT
  Age: 41 Year
  Sex: Male
  Weight: 71.7 kg

DRUGS (50)
  1. OXYCONTIN [Suspect]
     Indication: PAIN
     Dosage: SEE IMAGE
     Route: 048
     Dates: start: 19990301
  2. OXYCODONE HCL [Suspect]
  3. OXYIR CAPSULES 5 MG (OXYCODONE HYDROCHLORIDE) IR CAPSULE [Concomitant]
  4. MORPHINE SULFATE [Concomitant]
  5. AVALIDE (HYDROCHLOROTHIAZIDE) [Concomitant]
  6. VICODIN ES [Concomitant]
  7. SOMA [Concomitant]
  8. LORCET-HD [Concomitant]
  9. FOLIC ACID [Concomitant]
  10. PHENERGAN [Concomitant]
  11. NIFEREX (POLYSACCHARIDE-IRON COMPLEX) [Concomitant]
  12. AMBIEN [Concomitant]
  13. VIAGRA [Concomitant]
  14. TYLOX (OXYCODONE TEREPHTHALATE) [Concomitant]
  15. CLARITIN-D [Concomitant]
  16. DELTASONE [Concomitant]
  17. DIAZEPAM [Concomitant]
  18. ERYTHRO ES (ERYTHROMYCIN ETHYLSUCCINATE) [Concomitant]
  19. XANAX [Concomitant]
  20. CEPHALEXIN [Concomitant]
  21. ALLEGRA-D-SLOW RELEASE (PSEUDOEPHEDRINE HYDROCHLORIDE, FEXOFENADINE HY [Concomitant]
  22. ZIAC [Concomitant]
  23. BENZONATATE (BENZONATATE) [Concomitant]
  24. METHADONE HCL [Concomitant]
  25. GUAIFENESIN/PSEUDOEP. HCL/COD. PHOS. ^SCHEIN^ (GUAIFENESIN, PSEUDOEPHE [Concomitant]
  26. LOTRISONE [Concomitant]
  27. DURAGESIC [Concomitant]
  28. NORCO [Concomitant]
  29. FLONASE [Concomitant]
  30. BIAXIN [Concomitant]
  31. VITAMIN B12 (CYANOCOBALAMIN AND DERIVATIVES) [Concomitant]
  32. CLARITIN [Concomitant]
  33. PROMETHAZINE HYDROCHLORIDE WITH CODEINE (PROMETHAZINE HYDROCHLORIDE) [Concomitant]
  34. LORTAB [Concomitant]
  35. PERCOCET [Concomitant]
  36. LORAZEPAM [Concomitant]
  37. ZANAFLEX [Concomitant]
  38. DECADRON [Concomitant]
  39. ZYRTEC [Concomitant]
  40. PROPOXYPHENE HCL AND ACETAMINOPHEN [Concomitant]
  41. ALBUTEROL [Concomitant]
  42. ELAVIL [Concomitant]
  43. ATIVAN [Concomitant]
  44. GABITRIL [Concomitant]
  45. EFFEXOR [Concomitant]
  46. ACETAMINOPHEN [Concomitant]
  47. ZALEPLON (ZALEPLON) [Concomitant]
  48. VISTARIL [Concomitant]
  49. SEREVENT [Concomitant]
  50. PENICILLIN-VK [Concomitant]

REACTIONS (61)
  - ABSCESS [None]
  - AGITATION [None]
  - ALCOHOLISM [None]
  - ANXIETY [None]
  - ARTHROPOD BITE [None]
  - ASTHENIA [None]
  - BACK PAIN [None]
  - BRONCHITIS [None]
  - CHRONIC OBSTRUCTIVE AIRWAYS DISEASE EXACERBATED [None]
  - CONSTIPATION [None]
  - DECREASED APPETITE [None]
  - DENTAL CARIES [None]
  - DEPRESSION [None]
  - DIARRHOEA [None]
  - DIZZINESS [None]
  - DRUG ABUSER [None]
  - DRUG DEPENDENCE [None]
  - DRUG INEFFECTIVE [None]
  - DRUG TOLERANCE INCREASED [None]
  - DRUG WITHDRAWAL SYNDROME [None]
  - DYSPNOEA [None]
  - FATIGUE [None]
  - FEAR [None]
  - HEADACHE [None]
  - HYPERHIDROSIS [None]
  - HYPOAESTHESIA [None]
  - HYPONATRAEMIA [None]
  - HYPOVOLAEMIA [None]
  - HYPOXIA [None]
  - INJURY [None]
  - INSOMNIA [None]
  - IRRITABILITY [None]
  - LETHARGY [None]
  - LIBIDO DECREASED [None]
  - LOSS OF CONSCIOUSNESS [None]
  - MALE SEXUAL DYSFUNCTION [None]
  - MANIA [None]
  - MOOD ALTERED [None]
  - MYALGIA [None]
  - NASAL CONGESTION [None]
  - OEDEMA [None]
  - OEDEMA PERIPHERAL [None]
  - PANIC ATTACK [None]
  - PARANOIA [None]
  - PERSONALITY DISORDER [None]
  - PHARYNGITIS [None]
  - PLEURITIC PAIN [None]
  - PNEUMONITIS [None]
  - POLLAKIURIA [None]
  - PSYCHOTIC DISORDER [None]
  - RESTLESSNESS [None]
  - SELF ESTEEM DECREASED [None]
  - SINUSITIS [None]
  - SUICIDAL IDEATION [None]
  - TOBACCO ABUSE [None]
  - TOOTH ABSCESS [None]
  - TOOTH LOSS [None]
  - TOOTHACHE [None]
  - TREMOR [None]
  - URINARY HESITATION [None]
  - WEIGHT DECREASED [None]
